FAERS Safety Report 8470892-8 (Version None)
Quarter: 2012Q2

REPORT INFORMATION
  Report Type: 
  Country: None (occurrence: None)
  Receive Date: 20120323
  Receipt Date: 20111102
  Transmission Date: 20120825
  Serious: Yes (Death, Other)
  Sender: FDA-Public Use
  Company Number: 163-21880-11081679

PATIENT
  Age: 87 Year
  Sex: Female
  Weight: 57.1532 kg

DRUGS (9)
  1. REVLIMID [Suspect]
     Indication: 5Q MINUS SYNDROME
     Dosage: 10 MG, 1 IN 1 D, PO 5 MG, 1 IN 1 D, PO 5 MG, 1 IN 1 D, PO
     Route: 048
     Dates: start: 20090114, end: 20090101
  2. REVLIMID [Suspect]
     Indication: REFRACTORY ANAEMIA
     Dosage: 10 MG, 1 IN 1 D, PO 5 MG, 1 IN 1 D, PO 5 MG, 1 IN 1 D, PO
     Route: 048
     Dates: start: 20090114, end: 20090101
  3. REVLIMID [Suspect]
     Indication: 5Q MINUS SYNDROME
     Dosage: 10 MG, 1 IN 1 D, PO 5 MG, 1 IN 1 D, PO 5 MG, 1 IN 1 D, PO
     Route: 048
     Dates: start: 20100316, end: 20110810
  4. REVLIMID [Suspect]
     Indication: REFRACTORY ANAEMIA
     Dosage: 10 MG, 1 IN 1 D, PO 5 MG, 1 IN 1 D, PO 5 MG, 1 IN 1 D, PO
     Route: 048
     Dates: start: 20100316, end: 20110810
  5. REVLIMID [Suspect]
     Indication: 5Q MINUS SYNDROME
     Dosage: 10 MG, 1 IN 1 D, PO 5 MG, 1 IN 1 D, PO 5 MG, 1 IN 1 D, PO
     Route: 048
     Dates: start: 20091001
  6. REVLIMID [Suspect]
     Indication: REFRACTORY ANAEMIA
     Dosage: 10 MG, 1 IN 1 D, PO 5 MG, 1 IN 1 D, PO 5 MG, 1 IN 1 D, PO
     Route: 048
     Dates: start: 20091001
  7. METOPROLOL SUCCINATE (METOPROLOL SUCCINATE) (TABLETS) [Concomitant]
  8. ISORDIL (ISOSORBIDE DINITRATE) (TABLETS) [Concomitant]
  9. COUMADIN [Concomitant]

REACTIONS (11)
  - DISEASE PROGRESSION [None]
  - NEUTROPENIA [None]
  - NEUROPATHY PERIPHERAL [None]
  - GOUT [None]
  - DIARRHOEA [None]
  - FAECAL INCONTINENCE [None]
  - BLOOD POTASSIUM DECREASED [None]
  - CARDIAC FAILURE CONGESTIVE [None]
  - DECREASED APPETITE [None]
  - THROMBOCYTOPENIA [None]
  - WEIGHT DECREASED [None]
